FAERS Safety Report 10573031 (Version 1)
Quarter: 2014Q4

REPORT INFORMATION
  Report Type: Spontaneous
  Country: US (occurrence: None)
  Receive Date: 20141107
  Receipt Date: 20141107
  Transmission Date: 20150529
  Serious: Yes (Other)
  Sender: FDA-Public Use
  Company Number: None

PATIENT
  Age: 54 Year
  Sex: Female
  Weight: 90.72 kg

DRUGS (2)
  1. CLINDAMYCIN [Suspect]
     Active Substance: CLINDAMYCIN\CLINDAMYCIN PHOSPHATE
     Indication: CARDIAC MURMUR
     Dosage: 2 CAPSULES TAKEN BY MOUTH
     Route: 048
     Dates: start: 20141105, end: 20141105
  2. CLINDAMYCIN [Suspect]
     Active Substance: CLINDAMYCIN\CLINDAMYCIN PHOSPHATE
     Dosage: 2 CAPSULES TAKEN BY MOUTH
     Route: 048
     Dates: start: 20141105, end: 20141105

REACTIONS (3)
  - Pyrexia [None]
  - Abdominal discomfort [None]
  - Influenza like illness [None]

NARRATIVE: CASE EVENT DATE: 20141105
